FAERS Safety Report 18961981 (Version 2)
Quarter: 2021Q1

REPORT INFORMATION
  Report Type: Report from Study
  Country: JP (occurrence: JP)
  Receive Date: 20210302
  Receipt Date: 20210304
  Transmission Date: 20210420
  Serious: Yes (Death)
  Sender: FDA-Public Use
  Company Number: JP-CELLTRION INC.-2019JP027315

PATIENT

DRUGS (12)
  1. NKS 1 [Suspect]
     Active Substance: GIMERACIL\OTERACIL\TEGAFUR
     Dosage: 80 MILLIGRAM, QD
     Route: 048
     Dates: start: 20190509, end: 20190523
  2. NKS 1 [Suspect]
     Active Substance: GIMERACIL\OTERACIL\TEGAFUR
     Dosage: 80 MILLIGRAM, QD
     Route: 048
     Dates: start: 20190620, end: 20190704
  3. CT?P6 [Suspect]
     Active Substance: INVESTIGATIONAL BIOSIMILARS
     Dosage: 210 MILLIGRAM, EVERY ADMINISTRATION
     Route: 041
     Dates: start: 20190530, end: 20190530
  4. CT?P6 [Suspect]
     Active Substance: INVESTIGATIONAL BIOSIMILARS
     Dosage: 210 MILLIGRAM, EVERY ADMINISTRATION
     Route: 041
     Dates: start: 20190801, end: 20190801
  5. NKS 1 [Suspect]
     Active Substance: GIMERACIL\OTERACIL\TEGAFUR
     Dosage: 80 MILLIGRAM, QD
     Route: 048
     Dates: start: 20190711, end: 20190725
  6. NKS 1 [Suspect]
     Active Substance: GIMERACIL\OTERACIL\TEGAFUR
     Dosage: 80 MILLIGRAM, QD
     Route: 048
     Dates: start: 20190530, end: 20190613
  7. NKS 1 [Suspect]
     Active Substance: GIMERACIL\OTERACIL\TEGAFUR
     Dosage: 80 MILLIGRAM, QD
     Route: 048
     Dates: start: 20190801, end: 20190825
  8. CT?P6 [Suspect]
     Active Substance: INVESTIGATIONAL BIOSIMILARS
     Dosage: 210 MILLIGRAM, EVERY ADMINISTRATION
     Route: 041
     Dates: start: 20190509, end: 20190509
  9. NKS 1 [Suspect]
     Active Substance: GIMERACIL\OTERACIL\TEGAFUR
     Indication: HER2 POSITIVE GASTRIC CANCER
     Dosage: 80 MILLIGRAM, QD
     Route: 048
     Dates: start: 20190418, end: 20190502
  10. CT?P6 [Suspect]
     Active Substance: INVESTIGATIONAL BIOSIMILARS
     Dosage: 210 MILLIGRAM, EVERY ADMINISTRATION
     Route: 041
     Dates: start: 20190620, end: 20190620
  11. CT?P6 [Suspect]
     Active Substance: INVESTIGATIONAL BIOSIMILARS
     Indication: HER2 POSITIVE GASTRIC CANCER
     Dosage: 300 MILLIGRAM, EVERY ADMINISTRATION
     Route: 041
     Dates: start: 20190418, end: 20190418
  12. CT?P6 [Suspect]
     Active Substance: INVESTIGATIONAL BIOSIMILARS
     Dosage: 210 MILLIGRAM, EVERY ADMINISTRATION
     Route: 041
     Dates: start: 20190711, end: 20190711

REACTIONS (3)
  - Lacrimation increased [Fatal]
  - Intentional underdose [Unknown]
  - Disease progression [Unknown]

NARRATIVE: CASE EVENT DATE: 20190509
